FAERS Safety Report 6872884-9 (Version None)
Quarter: 2010Q3

REPORT INFORMATION
  Report Type: 
  Country: None (occurrence: None)
  Receive Date: 20100723
  Receipt Date: 20081103
  Transmission Date: 20110219
  Serious: No
  Sender: FDA-Public Use
  Company Number: US-PFIZER INC-2008093346

PATIENT
  Sex: Female
  Weight: 83.01 kg

DRUGS (5)
  1. CHANTIX [Suspect]
     Indication: SMOKING CESSATION THERAPY
     Route: 048
     Dates: start: 20080801
  2. PREVACID [Concomitant]
  3. XANAX [Concomitant]
  4. POTASSIUM [Concomitant]
  5. LASIX [Concomitant]

REACTIONS (3)
  - DRUG DOSE OMISSION [None]
  - NERVOUSNESS [None]
  - RENAL FUNCTION TEST ABNORMAL [None]
